FAERS Safety Report 21133956 (Version 1)
Quarter: 2022Q3

REPORT INFORMATION
  Report Type: Spontaneous
  Country: US (occurrence: US)
  Receive Date: 20220726
  Receipt Date: 20220726
  Transmission Date: 20221027
  Serious: No
  Sender: FDA-Public Use
  Company Number: US-OYSTER POINT PHARMA, INC.-2022OYS00455

PATIENT
  Age: 92 Year
  Sex: Female
  Weight: 65.76 kg

DRUGS (7)
  1. TYRVAYA [Suspect]
     Active Substance: VARENICLINE TARTRATE
     Indication: Dry eye
     Dosage: 1 SPRAY IN EACH NOSTRIL, 2X/DAY (12 HOURS APART, IN THE MORNING AND EVENING)
     Route: 045
     Dates: start: 202205
  2. TYRVAYA [Suspect]
     Active Substance: VARENICLINE TARTRATE
     Indication: Retinal disorder
  3. GABAPENTIN [Concomitant]
     Active Substance: GABAPENTIN
     Dosage: 400 MG, 4X/DAY
  4. MINERALS\VITAMINS [Concomitant]
     Active Substance: MINERALS\VITAMINS
     Dosage: UNK, 2X/DAY
  5. VITAMIN D [Concomitant]
     Active Substance: VITAMIN D NOS
     Dosage: 1 DOSAGE UNITS, 1X/DAY
  6. VITAMINS [Concomitant]
     Active Substance: VITAMINS
  7. UNSPECIFIED MEDICATION FOR NEUROPATHY [Concomitant]

REACTIONS (3)
  - Rhinorrhoea [Not Recovered/Not Resolved]
  - Nasal discomfort [Not Recovered/Not Resolved]
  - Sneezing [Not Recovered/Not Resolved]

NARRATIVE: CASE EVENT DATE: 20220501
